FAERS Safety Report 19175517 (Version 2)
Quarter: 2021Q2

REPORT INFORMATION
  Report Type: Spontaneous
  Country: US (occurrence: US)
  Receive Date: 20210423
  Receipt Date: 20210622
  Transmission Date: 20210717
  Serious: Yes (Other)
  Sender: FDA-Public Use
  Company Number: US-ALXN-A202104798

PATIENT
  Sex: Male

DRUGS (2)
  1. SOLIRIS [Suspect]
     Active Substance: ECULIZUMAB
     Indication: OFF LABEL USE
  2. SOLIRIS [Suspect]
     Active Substance: ECULIZUMAB
     Indication: THROMBOTIC MICROANGIOPATHY
     Route: 065

REACTIONS (11)
  - Off label use [Unknown]
  - Immunodeficiency [Unknown]
  - Hypersomnia [Unknown]
  - Blood pressure abnormal [Unknown]
  - Epistaxis [Unknown]
  - Rhinorrhoea [Unknown]
  - Vomiting [Unknown]
  - Renal impairment [Unknown]
  - Sneezing [Unknown]
  - Haemoglobin decreased [Unknown]
  - Neoplasm malignant [Unknown]

NARRATIVE: CASE EVENT DATE: 20210408
